FAERS Safety Report 6485896-4 (Version None)
Quarter: 2009Q4

REPORT INFORMATION
  Report Type: 
  Country: None (occurrence: None)
  Receive Date: 20091209
  Receipt Date: 20090710
  Transmission Date: 20100525
  Serious: No
  Sender: FDA-Public Use
  Company Number: US-AMGEN-KDL355453

PATIENT
  Sex: Female

DRUGS (2)
  1. ENBREL [Suspect]
     Indication: RHEUMATOID ARTHRITIS
     Route: 058
     Dates: start: 20070109
  2. LEFLUNOMIDE [Concomitant]
     Dates: start: 20030527

REACTIONS (4)
  - EPISTAXIS [None]
  - MIGRAINE [None]
  - NAUSEA [None]
  - WOUND [None]
